FAERS Safety Report 11035507 (Version 2)
Quarter: 2015Q2

REPORT INFORMATION
  Report Type: Spontaneous
  Country: US (occurrence: US)
  Receive Date: 20150415
  Receipt Date: 20150525
  Transmission Date: 20150821
  Serious: No
  Sender: FDA-Public Use
  Company Number: US-JNJFOC-20150207740

PATIENT
  Age: 71 Year
  Sex: Female
  Weight: 72.58 kg

DRUGS (3)
  1. VITAMIN D [Concomitant]
     Active Substance: CHOLECALCIFEROL
     Indication: VITAMIN D DEFICIENCY
     Route: 048
  2. XARELTO [Suspect]
     Active Substance: RIVAROXABAN
     Indication: THROMBOSIS
     Route: 048
     Dates: start: 20141024
  3. MAGNESIUM [Concomitant]
     Active Substance: MAGNESIUM
     Indication: CHEST DISCOMFORT
     Dosage: SPLIT 400MG IN HALF. ITAKES 200MG IN AM AND ANOTHER 200MG IN EVENING
     Route: 048

REACTIONS (1)
  - Alopecia [Not Recovered/Not Resolved]

NARRATIVE: CASE EVENT DATE: 201412
